FAERS Safety Report 12653840 (Version 2)
Quarter: 2016Q4

REPORT INFORMATION
  Report Type: Report from Study
  Country: KZ (occurrence: KZ)
  Receive Date: 20160816
  Receipt Date: 20161201
  Transmission Date: 20170207
  Serious: Yes (Other)
  Sender: FDA-Public Use
  Company Number: KZ-ROCHE-1813703

PATIENT

DRUGS (1)
  1. ALTEPLASE [Suspect]
     Active Substance: ALTEPLASE
     Indication: ACUTE MYOCARDIAL INFARCTION
     Dosage: IV BOLUS INJECTIONS IN 15MG DOSE, AFTER WHICH AN IV INFUSION OF 50 MG WITHIN HALF AN HOUR, THEN AN I
     Route: 040

REACTIONS (1)
  - Arterial restenosis [Unknown]
